FAERS Safety Report 13738140 (Version 2)
Quarter: 2017Q3

REPORT INFORMATION
  Report Type: Spontaneous
  Country: US (occurrence: US)
  Receive Date: 20170710
  Receipt Date: 20170920
  Transmission Date: 20171127
  Serious: Yes (Hospitalization)
  Sender: FDA-Public Use
  Company Number: US-SA-2017SA121233

PATIENT
  Age: 66 Year
  Sex: Female
  Weight: 73 kg

DRUGS (21)
  1. OLANZAPINE. [Concomitant]
     Active Substance: OLANZAPINE
     Indication: DEPRESSION
     Route: 065
     Dates: start: 20160930
  2. ACETAMINOPHEN. [Concomitant]
     Active Substance: ACETAMINOPHEN
     Indication: BACK PAIN
     Route: 065
     Dates: start: 20170505
  3. DRONABINOL. [Concomitant]
     Active Substance: DRONABINOL
     Indication: DECREASED APPETITE
     Route: 065
     Dates: start: 20170509
  4. MAGNESIUM GLUCONATE [Concomitant]
     Active Substance: MAGNESIUM GLUCONATE
     Indication: HYPOMAGNESAEMIA
     Route: 065
     Dates: start: 20161118
  5. LOVENOX [Suspect]
     Active Substance: ENOXAPARIN SODIUM
     Indication: DEEP VEIN THROMBOSIS
     Route: 058
     Dates: start: 20170524, end: 20170525
  6. AVELUMAB [Suspect]
     Active Substance: AVELUMAB
     Indication: RENAL CELL CARCINOMA
     Route: 065
     Dates: start: 20170421, end: 20170421
  7. LOVENOX [Suspect]
     Active Substance: ENOXAPARIN SODIUM
     Indication: PULMONARY EMBOLISM
     Route: 058
     Dates: start: 20170522, end: 20170524
  8. LOVENOX [Suspect]
     Active Substance: ENOXAPARIN SODIUM
     Indication: DEEP VEIN THROMBOSIS
     Route: 058
     Dates: start: 20170526
  9. LOVENOX [Suspect]
     Active Substance: ENOXAPARIN SODIUM
     Indication: PULMONARY EMBOLISM
     Route: 058
     Dates: start: 20170504
  10. OLANZAPINE. [Concomitant]
     Active Substance: OLANZAPINE
     Indication: DECREASED APPETITE
     Route: 065
     Dates: start: 20160930
  11. OLANZAPINE. [Concomitant]
     Active Substance: OLANZAPINE
     Indication: NAUSEA
     Route: 065
     Dates: start: 20160930
  12. LOVENOX [Suspect]
     Active Substance: ENOXAPARIN SODIUM
     Indication: PULMONARY EMBOLISM
     Route: 058
     Dates: start: 20170526
  13. POTASSIUM CHLORIDE. [Concomitant]
     Active Substance: POTASSIUM CHLORIDE
     Indication: HYPOKALAEMIA
     Route: 065
     Dates: start: 20161118
  14. LOVENOX [Suspect]
     Active Substance: ENOXAPARIN SODIUM
     Indication: DEEP VEIN THROMBOSIS
     Route: 058
     Dates: start: 20170504
  15. LOVENOX [Suspect]
     Active Substance: ENOXAPARIN SODIUM
     Indication: DEEP VEIN THROMBOSIS
     Route: 058
     Dates: start: 20170522, end: 20170524
  16. LOVENOX [Suspect]
     Active Substance: ENOXAPARIN SODIUM
     Indication: PULMONARY EMBOLISM
     Route: 058
     Dates: start: 20170524, end: 20170525
  17. AVELUMAB [Suspect]
     Active Substance: AVELUMAB
     Indication: RENAL CELL CARCINOMA
     Route: 065
     Dates: start: 20160728, end: 20160728
  18. OXYCODONE [Concomitant]
     Active Substance: OXYCODONE
     Indication: BACK PAIN
     Route: 065
     Dates: start: 20170509
  19. ESOMEPRAZOLE [Concomitant]
     Active Substance: ESOMEPRAZOLE
     Indication: DYSPEPSIA
     Route: 065
     Dates: start: 20160603
  20. AXITINIB [Suspect]
     Active Substance: AXITINIB
     Indication: RENAL CELL CARCINOMA
     Route: 065
     Dates: start: 20160728, end: 20170505
  21. OLANZAPINE. [Concomitant]
     Active Substance: OLANZAPINE
     Indication: INSOMNIA
     Route: 065
     Dates: start: 20160930

REACTIONS (10)
  - Nerve root compression [Recovering/Resolving]
  - Haemoglobin decreased [Recovering/Resolving]
  - Disease progression [Recovering/Resolving]
  - Haematoma [Recovering/Resolving]
  - Muscular weakness [Recovered/Resolved with Sequelae]
  - Oedema peripheral [Recovering/Resolving]
  - Haemorrhage [Recovering/Resolving]
  - Anaemia [Recovered/Resolved]
  - Muscular weakness [Recovering/Resolving]
  - Polyneuropathy [Recovering/Resolving]

NARRATIVE: CASE EVENT DATE: 20170421
